FAERS Safety Report 8246797-4 (Version None)
Quarter: 2012Q1

REPORT INFORMATION
  Report Type: 
  Country: None (occurrence: None)
  Receive Date: 20120330
  Receipt Date: 20120327
  Transmission Date: 20120608
  Serious: Yes (Disabling)
  Sender: FDA-Public Use
  Company Number: US-PFIZER INC-2012079111

PATIENT

DRUGS (2)
  1. VIAGRA [Suspect]
     Dosage: 100 MG, AS NEEDED (1 PRN)
     Route: 048
  2. CELEBREX [Suspect]
     Dosage: 200 MG, ONE DAILY
     Route: 048

REACTIONS (1)
  - IMPAIRED WORK ABILITY [None]
